FAERS Safety Report 5296139-1 (Version None)
Quarter: 2007Q2

REPORT INFORMATION
  Report Type: 
  Country: None (occurrence: None)
  Receive Date: 20070413
  Receipt Date: 20070406
  Transmission Date: 20071010
  Serious: No
  Sender: FDA-Public Use
  Company Number: GR-BAXTER-2007BH003453

PATIENT
  Age: 43 Year
  Sex: Male

DRUGS (4)
  1. HEPARIN LOCK-FLUSH [Suspect]
     Indication: THROMBOSIS PROPHYLAXIS
     Route: 042
  2. OMEPRAZOLE [Concomitant]
     Indication: DRUG USE FOR UNKNOWN INDICATION
     Dosage: DOSE UNIT:UNKNOWN
     Route: 065
  3. CEFOTAXIME [Concomitant]
     Indication: DRUG USE FOR UNKNOWN INDICATION
     Dosage: DOSE UNIT:UNKNOWN
     Route: 065
  4. DIAZEPAM [Concomitant]
     Indication: DRUG USE FOR UNKNOWN INDICATION
     Dosage: DOSE UNIT:UNKNOWN
     Route: 065

REACTIONS (3)
  - GASTROINTESTINAL NECROSIS [None]
  - HEPARIN-INDUCED THROMBOCYTOPENIA [None]
  - MESENTERIC VEIN THROMBOSIS [None]
